FAERS Safety Report 18181694 (Version 1)
Quarter: 2020Q3

REPORT INFORMATION
  Report Type: Spontaneous
  Country: DE (occurrence: DE)
  Receive Date: 20200821
  Receipt Date: 20200821
  Transmission Date: 20201103
  Serious: Yes (Congenital Anomaly, Other)
  Sender: FDA-Public Use
  Company Number: DE-TEVA-2020-DE-1815740

PATIENT
  Age: 1 Day
  Sex: Female
  Weight: 3.08 kg

DRUGS (3)
  1. MIRTAZAPIN [Suspect]
     Active Substance: MIRTAZAPINE
     Indication: SLEEP DISORDER
     Dosage: 15 [MG/D ]/ 1ST AND 3RD TRIMESTER 7.5MG/D, 2ND TRIMESTER 15MG/D;
     Route: 064
     Dates: start: 20190303, end: 20191202
  2. VOMEX A [Concomitant]
     Active Substance: DIMENHYDRINATE
     Indication: HYPEREMESIS GRAVIDARUM
     Dosage: 3 TIMES
     Route: 064
  3. MECLIZINE [Concomitant]
     Active Substance: MECLIZINE HYDROCHLORIDE
     Indication: HYPEREMESIS GRAVIDARUM
     Dosage: 4 TIMES 25MG/D
     Route: 064

REACTIONS (3)
  - Arteriovenous malformation [Not Recovered/Not Resolved]
  - Melanocytic naevus [Unknown]
  - Foetal exposure during pregnancy [Unknown]

NARRATIVE: CASE EVENT DATE: 20191202
